FAERS Safety Report 23543678 (Version 1)
Quarter: 2024Q1

REPORT INFORMATION
  Report Type: Spontaneous
  Country: IT (occurrence: IT)
  Receive Date: 20240220
  Receipt Date: 20240220
  Transmission Date: 20240410
  Serious: Yes (Other)
  Sender: FDA-Public Use
  Company Number: IT-CELLTRION HEALTHCARE HUNGARY KFT-2023IT013492

PATIENT
  Age: 16 Year
  Sex: Female

DRUGS (1)
  1. ADALIMUMAB [Suspect]
     Active Substance: ADALIMUMAB\ISOPROPYL ALCOHOL
     Indication: Chronic recurrent multifocal osteomyelitis
     Dosage: 40 MG, Q2WEEKS
     Route: 058

REACTIONS (3)
  - Pyoderma gangrenosum [Recovered/Resolved]
  - Chronic recurrent multifocal osteomyelitis [Recovered/Resolved]
  - Off label use [Unknown]
